FAERS Safety Report 9252531 (Version 3)
Quarter: 2013Q2

REPORT INFORMATION
  Report Type: Report from Study
  Country: JP (occurrence: JP)
  Receive Date: 20130424
  Receipt Date: 20130513
  Transmission Date: 20140414
  Serious: Yes (Hospitalization)
  Sender: FDA-Public Use
  Company Number: JP-UCBSA-084146

PATIENT
  Age: 65 Year
  Sex: Male
  Weight: 69 kg

DRUGS (16)
  1. LAMICTAL [Suspect]
     Indication: COMPLEX PARTIAL SEIZURES
     Route: 048
     Dates: end: 20130219
  2. ARTIST [Concomitant]
     Dosage: DAILY DOSE: 2.5MG
     Route: 048
  3. WARFARIN [Concomitant]
     Dosage: DAILY DOSE: 2MG
     Route: 048
  4. FAMOTIDINE [Concomitant]
     Dosage: DAILY DOSE: 20MG
     Route: 048
  5. LISPINE R [Concomitant]
     Dosage: DAILY DOSE:300MG
     Route: 048
  6. LIVALO [Concomitant]
     Dosage: DAILY DOSE:2MG
     Route: 048
  7. LANTUS [Concomitant]
     Dosage: DAILY DOSE: 10IU
  8. SEIBULE [Concomitant]
     Dosage: DAILY DOSEL 150MG
     Route: 048
     Dates: end: 20130311
  9. AMARYL [Concomitant]
     Dosage: DAILY DOSE:3MG
     Route: 048
     Dates: end: 20130311
  10. METGLUCO [Concomitant]
     Dosage: DAILY DOSE:500MG
     Route: 048
     Dates: end: 20130311
  11. JANUVIA [Concomitant]
     Dosage: DAILY DOSE: 50MG
     Route: 048
     Dates: end: 20130311
  12. HUMULIN R [Concomitant]
     Dosage: DAILY DOSE: 18IU
     Dates: start: 20130312
  13. ALFAROL [Concomitant]
     Indication: OSTEOPOROSIS PROPHYLAXIS
     Dosage: DAILY DOSE: 1MCG
     Route: 048
     Dates: start: 20130312
  14. TALION [Concomitant]
     Indication: DRUG ERUPTION
     Dosage: 20MG/DAY
     Dates: start: 20130228, end: 20130311
  15. E KEPPRA [Suspect]
     Indication: COMPLEX PARTIAL SEIZURES
     Route: 048
     Dates: start: 20130220, end: 20130312
  16. TEGRETOL [Suspect]
     Indication: COMPLEX PARTIAL SEIZURES
     Dosage: DAILY DOSE: 300MG
     Route: 048
     Dates: end: 20130325

REACTIONS (2)
  - Drug eruption [Recovered/Resolved]
  - White blood cell count increased [Recovered/Resolved]
